FAERS Safety Report 15632475 (Version 1)
Quarter: 2018Q4

REPORT INFORMATION
  Report Type: Spontaneous
  Country: US (occurrence: US)
  Receive Date: 20181119
  Receipt Date: 20181119
  Transmission Date: 20190205
  Serious: Yes (Other)
  Sender: FDA-Public Use
  Company Number: None

PATIENT
  Age: 41 Year
  Sex: Male
  Weight: 98.1 kg

DRUGS (7)
  1. BUPROPRION XL [Suspect]
     Active Substance: BUPROPION
     Indication: DEPRESSION
     Route: 048
     Dates: start: 20181115, end: 20181118
  2. LEVOTHYROXINE 175 MCG [Concomitant]
  3. PROPRANOLOL 80 MG [Concomitant]
  4. ZOLPIDEM [Concomitant]
     Active Substance: ZOLPIDEM\ZOLPIDEM TARTRATE
  5. LOSARTAN 50 MG [Concomitant]
     Active Substance: LOSARTAN
  6. HYDROCHLOROTHIAZIDE 25 MG [Concomitant]
     Active Substance: HYDROCHLOROTHIAZIDE
  7. PRAVASTATIN 40 MG [Concomitant]
     Active Substance: PRAVASTATIN

REACTIONS (1)
  - Tinnitus [None]

NARRATIVE: CASE EVENT DATE: 20181117
